FAERS Safety Report 8483264-7 (Version None)
Quarter: 2012Q3

REPORT INFORMATION
  Report Type: 
  Country: None (occurrence: None)
  Receive Date: 20120702
  Receipt Date: 20120621
  Transmission Date: 20120928
  Serious: No
  Sender: FDA-Public Use
  Company Number: US-TEVA-344608USA

PATIENT
  Sex: Female
  Weight: 59.02 kg

DRUGS (6)
  1. NUVIGIL [Suspect]
     Indication: FATIGUE
  2. NUVIGIL [Suspect]
     Indication: MULTIPLE SCLEROSIS
     Dosage: QAM
     Route: 048
     Dates: start: 20120401
  3. COPAXONE [Concomitant]
     Indication: MULTIPLE SCLEROSIS
     Dosage: 20 MILLIGRAM;
     Route: 058
  4. MAXALT [Concomitant]
     Indication: MIGRAINE
     Dosage: 1 TABLET, REPEAT IN 1 HOUR PRN
     Route: 048
     Dates: start: 20110601
  5. PROZAC [Concomitant]
     Indication: DEPRESSION
     Dosage: 20 MILLIGRAM;
     Route: 048
     Dates: start: 20111201
  6. LORAZEPAM [Concomitant]
     Indication: SLEEP DISORDER
     Route: 048

REACTIONS (3)
  - STOMATITIS [None]
  - OFF LABEL USE [None]
  - URTICARIA [None]
